FAERS Safety Report 15584536 (Version 2)
Quarter: 2020Q2

REPORT INFORMATION
  Report Type: Spontaneous
  Country: NO (occurrence: NO)
  Receive Date: 20181105
  Receipt Date: 20200422
  Transmission Date: 20200713
  Serious: Yes (Other)
  Sender: FDA-Public Use
  Company Number: NO-TEVA-631969ISR

PATIENT
  Age: 71 Year
  Sex: Male

DRUGS (2)
  1. ALVESCO [Interacting]
     Active Substance: CICLESONIDE
     Indication: ASTHMA
     Route: 065
  2. CIPROFLOXACIN ACTAVIS 500MG [Suspect]
     Active Substance: CIPROFLOXACIN
     Indication: URINARY TRACT INFECTION
     Route: 048

REACTIONS (29)
  - Arthralgia [Not Recovered/Not Resolved]
  - Nausea [Unknown]
  - Depression [Unknown]
  - Inflammation [Not Recovered/Not Resolved]
  - Insomnia [Unknown]
  - Muscle rigidity [Unknown]
  - Influenza like illness [Unknown]
  - Diverticulitis [Recovered/Resolved]
  - Discomfort [Not Recovered/Not Resolved]
  - Pain [Unknown]
  - Impaired quality of life [Unknown]
  - Bladder discomfort [Unknown]
  - Diarrhoea [Not Recovered/Not Resolved]
  - Headache [Unknown]
  - Tinnitus [Unknown]
  - Drug interaction [Unknown]
  - Dizziness [Unknown]
  - Heart alternation [Recovered/Resolved]
  - Hypoaesthesia [Not Recovered/Not Resolved]
  - Gait inability [Unknown]
  - Tendon pain [Unknown]
  - Bedridden [Unknown]
  - Tendon disorder [Unknown]
  - Fatigue [Unknown]
  - Immune system disorder [Unknown]
  - Neuropathy peripheral [Unknown]
  - Palpitations [Unknown]
  - Pain in extremity [Unknown]
  - Myalgia [Unknown]
